FAERS Safety Report 18627293 (Version 4)
Quarter: 2021Q1

REPORT INFORMATION
  Report Type: Report from Study
  Country: US (occurrence: US)
  Receive Date: 20201217
  Receipt Date: 20210301
  Transmission Date: 20210419
  Serious: No
  Sender: FDA-Public Use
  Company Number: NVSC2020US329394

PATIENT
  Sex: Female

DRUGS (1)
  1. COSENTYX [Suspect]
     Active Substance: SECUKINUMAB
     Indication: AXIAL SPONDYLOARTHRITIS
     Dosage: 150 MG, QW
     Route: 058

REACTIONS (5)
  - Fatigue [Unknown]
  - Injection site bruising [Unknown]
  - Nasopharyngitis [Unknown]
  - Diarrhoea [Unknown]
  - Rhinorrhoea [Unknown]
